FAERS Safety Report 8124915-6 (Version None)
Quarter: 2012Q1

REPORT INFORMATION
  Report Type: 
  Country: None (occurrence: None)
  Receive Date: 20120209
  Receipt Date: 20120206
  Transmission Date: 20120608
  Serious: Yes (Hospitalization)
  Sender: FDA-Public Use
  Company Number: DE-ROCHE-1038019

PATIENT
  Age: 46 Year
  Sex: Female
  Weight: 50 kg

DRUGS (6)
  1. PANTOPRAZOLE [Concomitant]
     Route: 048
     Dates: start: 20110801
  2. PEGINTERFERON ALFA-2A [Suspect]
     Indication: HEPATITIS C
     Route: 058
     Dates: start: 20111007, end: 20111129
  3. COPEGUS [Concomitant]
     Indication: HEPATITIS C
     Dosage: 200 MG IN MORNING AND 400 MG IN EVENING
     Route: 048
     Dates: start: 20111007, end: 20111129
  4. RAMIPRIL [Concomitant]
     Indication: HYPERTENSION
     Route: 048
     Dates: start: 20110801
  5. AMLODIPINE [Concomitant]
     Indication: HYPERTENSION
     Route: 048
     Dates: start: 20110801
  6. BOCEPREVIR [Suspect]
     Indication: HEPATITIS C
     Route: 048
     Dates: start: 20111007, end: 20111129

REACTIONS (1)
  - ARTERIAL OCCLUSIVE DISEASE [None]
